FAERS Safety Report 7248888-3 (Version None)
Quarter: 2010Q4

REPORT INFORMATION
  Report Type: 
  Country: None (occurrence: None)
  Receive Date: 20101012
  Receipt Date: 20100928
  Transmission Date: 20110411
  Serious: Yes (Hospitalization)
  Sender: FDA-Public Use
  Company Number: CV20100483

PATIENT
  Age: 79 Year
  Sex: Male

DRUGS (10)
  1. VOLUVEN [Suspect]
     Indication: HYPOVOLAEMIA
     Dosage: 3000 ML; INTRAVENOUS DRIP; 90 ML (INTRA-OPERATIVELY, INTRAVENOUS DRIP
     Route: 041
     Dates: start: 20100812, end: 20100812
  2. PHYSIO 35 (PHYSIO) [Concomitant]
  3. ACETATE RINGER [Concomitant]
  4. HEPARIN [Concomitant]
  5. CEFMETAZOLE [Concomitant]
  6. OMEPRAZOLE [Concomitant]
  7. AMINOACID GLUCOSE ELECTROLYTE (AMINO ACIDS NOS W/ELECTROLYTES NOS/GLUC [Concomitant]
  8. ALBUMIN (HUMAN) [Concomitant]
  9. LASIX [Concomitant]
  10. BLOOD PRODUCTS (RED BLOOD CELLS) [Concomitant]

REACTIONS (3)
  - ATELECTASIS [None]
  - PLEURAL EFFUSION [None]
  - RESPIRATORY FAILURE [None]
